FAERS Safety Report 25848876 (Version 1)
Quarter: 2025Q3

REPORT INFORMATION
  Report Type: Spontaneous
  Country: US (occurrence: US)
  Receive Date: 20250925
  Receipt Date: 20250925
  Transmission Date: 20251021
  Serious: Yes (Hospitalization)
  Sender: CALLIDITAS THERAPEUTICS AB
  Company Number: US-Calliditas-2025CAL01742

PATIENT
  Age: 45 Year
  Sex: Female

DRUGS (19)
  1. TARPEYO [Suspect]
     Active Substance: BUDESONIDE
     Indication: IgA nephropathy
     Route: 048
     Dates: start: 20250530
  2. TACROLIMUS [Concomitant]
     Active Substance: TACROLIMUS
  3. CELLCEPT [Concomitant]
     Active Substance: MYCOPHENOLATE MOFETIL
  4. PREDNISONE [Concomitant]
     Active Substance: PREDNISONE
  5. NYSTATIN [Concomitant]
     Active Substance: NYSTATIN
  6. K DUR [Concomitant]
  7. BACTRIM [Concomitant]
     Active Substance: SULFAMETHOXAZOLE\TRIMETHOPRIM
  8. VALGANCICLOVIR [Concomitant]
     Active Substance: VALGANCICLOVIR
  9. ASPIRIN [Concomitant]
     Active Substance: ASPIRIN
  10. LIPITOR [Concomitant]
     Active Substance: ATORVASTATIN CALCIUM
  11. PRISTIQ EXTENDED-RELEASE [Concomitant]
     Active Substance: DESVENLAFAXINE SUCCINATE
  12. PROTONIX [Concomitant]
     Active Substance: PANTOPRAZOLE SODIUM
  13. SEROQUEL [Concomitant]
     Active Substance: QUETIAPINE FUMARATE
  14. NEURONTIN [Concomitant]
     Active Substance: GABAPENTIN
  15. MULTIVITAMINS WITH FLUORIDE [ASCORBIC ACID;CYANOCOBALAMIN;ERGOCALCI... [Concomitant]
  16. LOSARTAN [Concomitant]
     Active Substance: LOSARTAN
  17. OZEMPIC [Concomitant]
     Active Substance: SEMAGLUTIDE
  18. VITAMIN D3 [Concomitant]
     Active Substance: CHOLECALCIFEROL
  19. AMBIEN [Concomitant]
     Active Substance: ZOLPIDEM TARTRATE

REACTIONS (18)
  - Gastritis [Unknown]
  - Blood creatinine increased [Recovering/Resolving]
  - Escherichia infection [Recovering/Resolving]
  - Anal incontinence [Recovered/Resolved]
  - Fungal infection [Unknown]
  - Accidental overdose [Recovered/Resolved]
  - Increased tendency to bruise [Unknown]
  - Chills [Recovered/Resolved]
  - Skin burning sensation [Unknown]
  - Feeling of body temperature change [Unknown]
  - Temperature regulation disorder [Unknown]
  - Insomnia [Unknown]
  - Immune system disorder [Recovering/Resolving]
  - Skin atrophy [Unknown]
  - Abdominal pain [Not Recovered/Not Resolved]
  - Vomiting [Not Recovered/Not Resolved]
  - Diarrhoea [Not Recovered/Not Resolved]
  - Product dose omission issue [Recovered/Resolved]

NARRATIVE: CASE EVENT DATE: 20250701
